FAERS Safety Report 6617453-0 (Version None)
Quarter: 2010Q1

REPORT INFORMATION
  Report Type: 
  Country: None (occurrence: None)
  Receive Date: 20100308
  Receipt Date: 20100115
  Transmission Date: 20100710
  Serious: Yes (Disabling, Other)
  Sender: FDA-Public Use
  Company Number: FR-JNJFOC-20091107863

PATIENT
  Age: 33 Year
  Sex: Female

DRUGS (6)
  1. LEVOFLOXACIN [Suspect]
     Indication: SINUSITIS
     Route: 048
  2. LEVOFLOXACIN [Suspect]
     Route: 048
  3. OFLOCET [Suspect]
     Indication: SINUSITIS
     Route: 065
     Dates: start: 20020101
  4. LEVOFLOXACIN [Suspect]
     Route: 065
  5. LEVOFLOXACIN [Suspect]
     Route: 065
  6. CORTANCYL [Suspect]
     Indication: DRUG USE FOR UNKNOWN INDICATION
     Route: 065
     Dates: start: 20050201, end: 20050203

REACTIONS (3)
  - INTENTIONAL DRUG MISUSE [None]
  - TENDONITIS [None]
  - TENOSYNOVITIS STENOSANS [None]
